FAERS Safety Report 4338107-X (Version None)
Quarter: 2004Q2

REPORT INFORMATION
  Report Type: 
  Country: None (occurrence: None)
  Receive Date: 20040407
  Receipt Date: 20040326
  Transmission Date: 20050107
  Serious: Yes (Hospitalization)
  Sender: FDA-Public Use
  Company Number: 02P-056-0205402-00

PATIENT
  Age: 57 Year
  Sex: Male
  Weight: 70 kg

DRUGS (3)
  1. KALETRA [Suspect]
     Indication: HIV INFECTION
     Dosage: PER ORAL
     Route: 048
     Dates: start: 20000608
  2. DIDANOSINE [Concomitant]
  3. LAMIVUDINE [Concomitant]

REACTIONS (4)
  - CALCINOSIS [None]
  - PAROTITIS [None]
  - SALIVARY GLAND CALCULUS [None]
  - SALIVARY GLAND PAIN [None]
